FAERS Safety Report 22097515 (Version 1)
Quarter: 2023Q1

REPORT INFORMATION
  Report Type: Spontaneous
  Country: US (occurrence: None)
  Receive Date: 20230314
  Receipt Date: 20230314
  Transmission Date: 20230417
  Serious: Yes (Hospitalization)
  Sender: FDA-Public Use
  Company Number: None

PATIENT
  Sex: Male

DRUGS (12)
  1. ABIRATERONE ACETATE [Suspect]
     Active Substance: ABIRATERONE ACETATE
     Indication: Prostate cancer
     Route: 048
     Dates: start: 20210712
  2. ATORVASTATIN [Concomitant]
     Active Substance: ATORVASTATIN
  3. DEXAMETHASON [Concomitant]
  4. IMIPRAM HCL [Concomitant]
  5. IMIPRAMINE POW HCL [Concomitant]
  6. LISINOPRIL [Concomitant]
     Active Substance: LISINOPRIL
  7. LUPRON DEPOT [Concomitant]
     Active Substance: LEUPROLIDE ACETATE
  8. OMEPRAZOLE SODIUM [Concomitant]
     Active Substance: OMEPRAZOLE SODIUM
  9. OXBUTYNIN TAB [Concomitant]
  10. PREDNISONE [Concomitant]
     Active Substance: PREDNISONE
  11. SUPREP BOWEL SOL PREP KIT [Concomitant]
  12. VITAMIN D3 [Concomitant]

REACTIONS (1)
  - Hospitalisation [None]
